FAERS Safety Report 6144341-9 (Version None)
Quarter: 2009Q2

REPORT INFORMATION
  Report Type: 
  Country: None (occurrence: None)
  Receive Date: 20090406
  Receipt Date: 20090331
  Transmission Date: 20091009
  Serious: Yes (Other)
  Sender: FDA-Public Use
  Company Number: US-PFIZER INC-2005024306

PATIENT
  Sex: Female

DRUGS (11)
  1. PROVERA [Suspect]
     Indication: HORMONE REPLACEMENT THERAPY
     Route: 048
     Dates: start: 19920101
  2. PREMARIN [Suspect]
     Indication: HORMONE REPLACEMENT THERAPY
     Dosage: UNK
     Dates: start: 19920101
  3. PREMPHASE 14/14 [Suspect]
     Indication: HORMONE REPLACEMENT THERAPY
     Dosage: UNK
     Dates: end: 19970101
  4. PREMPRO [Suspect]
     Indication: HORMONE REPLACEMENT THERAPY
     Dosage: UNK
     Dates: start: 19960401, end: 20000501
  5. PACERONE [Concomitant]
     Indication: CARDIAC DISORDER
     Dosage: UNK
     Dates: start: 19950101
  6. FUROSEMIDE [Concomitant]
     Indication: DIURETIC THERAPY
     Dosage: UNK
     Dates: start: 19950101
  7. PLAVIX [Concomitant]
     Indication: PROPHYLAXIS
     Dosage: UNK
     Dates: start: 19950101
  8. COREG [Concomitant]
     Indication: PROPHYLAXIS
     Dosage: UNK
     Dates: start: 19950101
  9. ASPIRIN [Concomitant]
     Indication: PROPHYLAXIS
     Dosage: UNK
     Dates: start: 19950101
  10. PREVACID [Concomitant]
     Indication: GASTROOESOPHAGEAL REFLUX DISEASE
     Dosage: UNK
     Dates: start: 19950101
  11. LIPITOR [Concomitant]
     Indication: BLOOD CHOLESTEROL
     Dosage: UNK
     Dates: start: 19950101

REACTIONS (1)
  - BREAST CANCER FEMALE [None]
